FAERS Safety Report 5113434-7 (Version None)
Quarter: 2006Q3

REPORT INFORMATION
  Report Type: 
  Country: None (occurrence: None)
  Receive Date: 20060921
  Receipt Date: 20060921
  Transmission Date: 20061208
  Serious: Yes (Other)
  Sender: FDA-Public Use
  Company Number: None

PATIENT
  Age: 29 Year
  Sex: Female
  Weight: 63.5036 kg

DRUGS (8)
  1. AMPHETAMINE SALTS 20MG GENERIC [Suspect]
     Indication: ATTENTION DEFICIT/HYPERACTIVITY DISORDER
     Dosage: SEE IMAGE
     Route: 048
     Dates: start: 20060320, end: 20060715
  2. LEVOXYL [Concomitant]
  3. MIRCETTE [Concomitant]
  4. FLOVENT [Concomitant]
  5. ADVAIR DISKUS 100/50 [Concomitant]
  6. ALLEGRA [Concomitant]
  7. ALBUTERAL INHALER [Concomitant]
  8. ALLEGRA-D 12 HOUR [Concomitant]

REACTIONS (2)
  - ANAPHYLACTIC REACTION [None]
  - ASTHMA [None]
